FAERS Safety Report 21485374 (Version 2)
Quarter: 2022Q4

REPORT INFORMATION
  Report Type: Spontaneous
  Country: HR (occurrence: HR)
  Receive Date: 20221020
  Receipt Date: 20221031
  Transmission Date: 20230112
  Serious: Yes (Death, Life-Threatening, Other)
  Sender: FDA-Public Use
  Company Number: HR-NOVARTISPH-NVSC2022HR234754

PATIENT
  Age: 10 Year
  Sex: Female

DRUGS (1)
  1. KYMRIAH [Suspect]
     Active Substance: TISAGENLECLEUCEL
     Indication: Acute lymphocytic leukaemia
     Dosage: UNK, ONCE/SINGLE (DOSE: 2.6 X 10*6/KG)
     Route: 042
     Dates: start: 20220902, end: 20220902

REACTIONS (10)
  - Encephalitis [Fatal]
  - Blast cell count increased [Unknown]
  - Cytokine release syndrome [Unknown]
  - Oxygen saturation decreased [Recovered/Resolved with Sequelae]
  - Urinary incontinence [Unknown]
  - Oedema [Not Recovered/Not Resolved]
  - Oliguria [Recovering/Resolving]
  - Pyrexia [Recovering/Resolving]
  - Leukopenia [Unknown]
  - Pancytopenia [Unknown]

NARRATIVE: CASE EVENT DATE: 20220902
